FAERS Safety Report 9147346 (Version 2)
Quarter: 2013Q2

REPORT INFORMATION
  Report Type: Spontaneous
  Country: US (occurrence: US)
  Receive Date: 20130307
  Receipt Date: 20130401
  Transmission Date: 20140414
  Serious: Yes (Other)
  Sender: FDA-Public Use
  Company Number: US-GLAXOSMITHKLINE-A1014400A

PATIENT
  Age: 22 Year
  Sex: Male

DRUGS (3)
  1. POTIGA [Suspect]
     Indication: CONVULSION
     Dosage: 450MG THREE TIMES PER DAY
     Route: 048
  2. CARBATROL [Concomitant]
     Dosage: 600MG TWICE PER DAY
  3. TOPAMAX [Concomitant]
     Dosage: 225MG SEE DOSAGE TEXT

REACTIONS (4)
  - Urinary retention [Recovered/Resolved]
  - Overdose [Unknown]
  - Micturition disorder [Recovered/Resolved]
  - Dysuria [Recovered/Resolved]
